FAERS Safety Report 8507429-0 (Version None)
Quarter: 2012Q3

REPORT INFORMATION
  Report Type: 
  Country: None (occurrence: None)
  Receive Date: 20120712
  Receipt Date: 20120629
  Transmission Date: 20120928
  Serious: Yes (Other)
  Sender: FDA-Public Use
  Company Number: CHPA2012US014752

PATIENT
  Sex: Female

DRUGS (1)
  1. BENEFIBER W/ WHEAT DEXTRIN [Suspect]
     Indication: NUTRITIONAL SUPPORT
     Dosage: 1 TSP, QHS
     Route: 048
     Dates: start: 20070101

REACTIONS (4)
  - HEAD TITUBATION [None]
  - IRRITABLE BOWEL SYNDROME [None]
  - UNDERDOSE [None]
  - DIARRHOEA [None]
